FAERS Safety Report 8190373 (Version 6)
Quarter: 2013Q3

REPORT INFORMATION
  Report Type: Report from Study
  Country: US (occurrence: US)
  Receive Date: 20111019
  Receipt Date: 20130718
  Transmission Date: 20140515
  Serious: Yes (Life-Threatening)
  Sender: FDA-Public Use
  Company Number: US-ROCHE-1004165

PATIENT
  Age: 50 Year
  Sex: Male
  Weight: 77.3 kg

DRUGS (9)
  1. GDC-0980 (PI3K/MTOR INHIBITOR) [Suspect]
     Indication: NEOPLASM MALIGNANT
     Dosage: CYCLE 1
     Route: 048
     Dates: start: 20110722, end: 20110803
  2. GDC-0980 (PI3K/MTOR INHIBITOR) [Suspect]
     Dosage: CYCLE 2
     Route: 048
     Dates: start: 20110816, end: 20110829
  3. GDC-0980 (PI3K/MTOR INHIBITOR) [Suspect]
     Dosage: CYCLE 3
     Route: 048
     Dates: start: 20110906, end: 20110919
  4. GDC-0980 (PI3K/MTOR INHIBITOR) [Suspect]
     Dosage: CYCLE 4
     Route: 048
     Dates: start: 20110927, end: 20111010
  5. CAPECITABINE [Suspect]
     Indication: NEOPLASM MALIGNANT
     Route: 048
     Dates: start: 20110721, end: 20111010
  6. SIMVASTATIN [Concomitant]
     Indication: HYPERLIPIDAEMIA
     Route: 048
     Dates: start: 2009
  7. IMODIUM [Concomitant]
     Indication: DIARRHOEA
     Route: 048
     Dates: start: 201109
  8. COMPAZINE [Concomitant]
     Indication: NAUSEA
     Route: 048
     Dates: start: 201108
  9. CLINDAMYCIN [Concomitant]
     Indication: RASH
     Route: 061
     Dates: start: 20110816

REACTIONS (1)
  - Large intestine perforation [Recovered/Resolved]
